FAERS Safety Report 9460009 (Version 1)
Quarter: 2013Q3

REPORT INFORMATION
  Report Type: Report from Study
  Country: GB (occurrence: GB)
  Receive Date: 20130815
  Receipt Date: 20130815
  Transmission Date: 20140515
  Serious: Yes (Other)
  Sender: FDA-Public Use
  Company Number: GB-JNJFOC-20130805455

PATIENT
  Age: 45 Year
  Sex: Female

DRUGS (1)
  1. REMICADE [Suspect]
     Indication: RHEUMATOID ARTHRITIS
     Dosage: INFLIXIMAB INFUSIONS EVERY 10-12 WEEKS
     Route: 042
     Dates: start: 20040727

REACTIONS (2)
  - Iridocyclitis [Recovered/Resolved]
  - Infection [Recovered/Resolved]
